FAERS Safety Report 8595887 (Version 5)
Quarter: 2014Q2

REPORT INFORMATION
  Report Type: Spontaneous
  Country: US (occurrence: US)
  Receive Date: 20120605
  Receipt Date: 20140423
  Transmission Date: 20141212
  Serious: Yes (Hospitalization, Other)
  Sender: FDA-Public Use
  Company Number: US-ASTRAZENECA-2012SE35769

PATIENT
  Age: 60 Year
  Sex: Female

DRUGS (30)
  1. NEXIUM [Suspect]
     Indication: GASTRIC DISORDER
     Dosage: 2 TIMES
     Route: 048
     Dates: start: 20120618
  2. NEXIUM [Suspect]
     Indication: DYSPEPSIA
     Dosage: 2 TIMES
     Route: 048
     Dates: start: 20120618
  3. NEXIUM [Suspect]
     Indication: GASTROOESOPHAGEAL REFLUX DISEASE
     Dosage: 2 TIMES
     Route: 048
     Dates: start: 20120618
  4. NEXIUM [Suspect]
     Indication: GASTRIC DISORDER
     Route: 048
     Dates: start: 20120618
  5. NEXIUM [Suspect]
     Indication: DYSPEPSIA
     Route: 048
     Dates: start: 20120618
  6. NEXIUM [Suspect]
     Indication: GASTROOESOPHAGEAL REFLUX DISEASE
     Route: 048
     Dates: start: 20120618
  7. PRILOSEC [Suspect]
     Route: 048
     Dates: start: 20120210
  8. PRILOSEC [Suspect]
     Route: 048
     Dates: start: 20120210
  9. PRILOSEC OTC [Suspect]
     Route: 048
  10. PREVACID [Concomitant]
  11. ZANTAC [Concomitant]
     Dates: start: 2009
  12. TAGAMET [Concomitant]
     Dates: start: 2001
  13. FLUTICASONE [Concomitant]
     Dates: start: 20120215
  14. PREDNISONE [Concomitant]
     Dates: start: 20120409
  15. ITRACONAZOLE [Concomitant]
     Dates: start: 20120412
  16. SINGULAIR [Concomitant]
     Dates: start: 20120519
  17. METOLAZONE [Concomitant]
     Dates: start: 20120618
  18. POTASSIUM CHLORIDE [Concomitant]
     Route: 048
     Dates: start: 20130123
  19. METFORMIN [Concomitant]
     Route: 048
     Dates: start: 20120725
  20. ESCITALOPRAM [Concomitant]
  21. TRAZODONE [Concomitant]
     Dates: start: 20121127
  22. CLOPIDOGREL [Concomitant]
     Route: 048
     Dates: start: 20120817
  23. CITALOPRAM [Concomitant]
     Route: 048
     Dates: start: 20130314
  24. TRADJENTA [Concomitant]
     Route: 048
     Dates: start: 20130501
  25. NIFEDIPINE [Concomitant]
     Route: 048
     Dates: start: 20130610
  26. CRESTOR [Concomitant]
     Dates: start: 20131008
  27. OXYBUTYNIN ER [Concomitant]
     Dates: start: 20131113
  28. WARFARIN SOD [Concomitant]
     Dates: start: 20130620
  29. HYDROXYZINE HCL [Concomitant]
     Route: 048
     Dates: start: 20100419
  30. CYCLOBENZAPRINE HCL [Concomitant]
     Route: 048
     Dates: start: 20100419

REACTIONS (18)
  - Lower limb fracture [Unknown]
  - Asthma [Unknown]
  - Hypertension [Unknown]
  - Arthropathy [Unknown]
  - Diabetic neuropathy [Unknown]
  - Multiple fractures [Unknown]
  - Fall [Unknown]
  - Osteoporosis [Unknown]
  - Arthritis [Unknown]
  - Bone pain [Unknown]
  - Cataract [Unknown]
  - Lung disorder [Unknown]
  - Diabetes mellitus [Unknown]
  - Rheumatoid arthritis [Unknown]
  - Osteoarthritis [Unknown]
  - Radiculopathy [Unknown]
  - Tibia fracture [Unknown]
  - Depression [Unknown]
